FAERS Safety Report 4982865-8 (Version None)
Quarter: 2006Q2

REPORT INFORMATION
  Report Type: 
  Country: None (occurrence: None)
  Receive Date: 20060420
  Receipt Date: 20060410
  Transmission Date: 20061013
  Serious: Yes (Hospitalization)
  Sender: FDA-Public Use
  Company Number: 2006-01364

PATIENT
  Age: 40 Year
  Sex: Female
  Weight: 86.6 kg

DRUGS (1)
  1. FERRLECIT [Suspect]
     Indication: IRON DEFICIENCY ANAEMIA
     Dosage: 500 MG, SINGLE, INTRAVENOUS
     Route: 042
     Dates: start: 20060407, end: 20060407

REACTIONS (4)
  - ARTHRALGIA [None]
  - BONE PAIN [None]
  - DRUG HYPERSENSITIVITY [None]
  - URTICARIA [None]
